FAERS Safety Report 18820774 (Version 8)
Quarter: 2021Q2

REPORT INFORMATION
  Report Type: Report from Study
  Country: CA (occurrence: CA)
  Receive Date: 20210202
  Receipt Date: 20210608
  Transmission Date: 20210717
  Serious: Yes (Hospitalization, Other)
  Sender: FDA-Public Use
  Company Number: CA-GLAXOSMITHKLINE-CA2021AMR020581

PATIENT
  Age: 63 Year
  Sex: Male

DRUGS (3)
  1. MEPOLIZUMAB [Suspect]
     Active Substance: MEPOLIZUMAB
     Indication: ASTHMA
     Dosage: 100 MG, Z (MONTHS)
     Route: 042
     Dates: start: 20181019
  2. MEPOLIZUMAB [Suspect]
     Active Substance: MEPOLIZUMAB
     Dosage: 100 MG, Z
     Route: 058
  3. MEPOLIZUMAB [Suspect]
     Active Substance: MEPOLIZUMAB
     Dosage: 100 MG, Z
     Route: 042

REACTIONS (18)
  - Oxygen saturation decreased [Unknown]
  - Chronic obstructive pulmonary disease [Unknown]
  - Dyspnoea [Recovering/Resolving]
  - Product dose omission issue [Unknown]
  - Dyspnoea [Unknown]
  - Dysphonia [Unknown]
  - Chills [Recovered/Resolved]
  - Fatigue [Unknown]
  - Pneumonitis [Unknown]
  - Cough [Unknown]
  - Asthenia [Unknown]
  - Respiratory rate decreased [Unknown]
  - Sleep disorder [Unknown]
  - Sleep apnoea syndrome [Recovering/Resolving]
  - Chest pain [Unknown]
  - Headache [Unknown]
  - Pneumonia [Unknown]
  - Hypertension [Unknown]

NARRATIVE: CASE EVENT DATE: 20210430
